FAERS Safety Report 6196458-0 (Version None)
Quarter: 2009Q2

REPORT INFORMATION
  Report Type: 
  Country: None (occurrence: None)
  Receive Date: 20090520
  Receipt Date: 20090515
  Transmission Date: 20091009
  Serious: Yes (Hospitalization)
  Sender: FDA-Public Use
  Company Number: JP-JNJFOC-20090503934

PATIENT

DRUGS (1)
  1. RISPERDAL [Suspect]
     Indication: HALLUCINATION, AUDITORY
     Route: 048

REACTIONS (3)
  - EMPHYSEMA [None]
  - ORTHOSTATIC HYPOTENSION [None]
  - PARKINSONISM [None]
